FAERS Safety Report 7015052-2 (Version None)
Quarter: 2010Q3

REPORT INFORMATION
  Report Type: 
  Country: None (occurrence: None)
  Receive Date: 20100927
  Receipt Date: 20100914
  Transmission Date: 20110219
  Serious: Yes (Other)
  Sender: FDA-Public Use
  Company Number: AT-NOVOPROD-314814

PATIENT
  Age: 47 Year
  Sex: Female

DRUGS (4)
  1. NORDITROPIN NORDIFLEX [Suspect]
     Dosage: UNK
     Dates: end: 20100630
  2. FEMOSTON [Concomitant]
  3. COMBITHYREX [Concomitant]
  4. HYDROCORTISONE [Concomitant]

REACTIONS (1)
  - MALIGNANT MELANOMA [None]
